FAERS Safety Report 16375435 (Version 3)
Quarter: 2025Q4

REPORT INFORMATION
  Report Type: Spontaneous
  Country: EU (occurrence: EU)
  Receive Date: 20190531
  Receipt Date: 20251024
  Transmission Date: 20260117
  Serious: Yes (Death, Life-Threatening, Hospitalization, Other)
  Sender: AUROBINDO
  Company Number: EU-AUROBINDO-AUR-APL-2019-029135

PATIENT
  Age: 60 Year
  Sex: Male
  Weight: 67 kg

DRUGS (2)
  1. CAPECITABINE [Interacting]
     Active Substance: CAPECITABINE
     Indication: Adenocarcinoma gastric
     Dosage: 1800 MILLIGRAM, TWO TIMES A DAY
     Route: 048
     Dates: start: 20140725, end: 20140808
  2. BRIVUDINE [Interacting]
     Active Substance: BRIVUDINE
     Indication: Herpes zoster
     Dosage: 125 MILLIGRAM, ONCE A DAY
     Route: 048
     Dates: start: 20140804, end: 20140811

REACTIONS (7)
  - Disseminated aspergillosis [Fatal]
  - Bronchopulmonary aspergillosis [Fatal]
  - Systemic toxicity [Fatal]
  - Pancytopenia [Fatal]
  - Drug interaction [Fatal]
  - Mucosal inflammation [Fatal]
  - Herpes zoster [Unknown]

NARRATIVE: CASE EVENT DATE: 20140801
